FAERS Safety Report 4896666-2 (Version None)
Quarter: 2006Q1

REPORT INFORMATION
  Report Type: 
  Country: None (occurrence: None)
  Receive Date: 20060131
  Receipt Date: 20060124
  Transmission Date: 20060701
  Serious: Yes (Death)
  Sender: FDA-Public Use
  Company Number: US-BRISTOL-MYERS SQUIBB COMPANY-13257647

PATIENT
  Age: 88 Year
  Sex: Female
  Weight: 54 kg

DRUGS (10)
  1. GLUCOPHAGE XR [Suspect]
     Indication: DIABETES MELLITUS NON-INSULIN-DEPENDENT
     Dates: start: 20010101
  2. MONOPRIL TABS 40 MG [Suspect]
     Indication: HYPERTENSION
     Dates: start: 20010101
  3. DIOVAN [Concomitant]
  4. CRESTOR [Concomitant]
  5. K-DUR 10 [Concomitant]
  6. LASIX [Concomitant]
  7. COREG [Concomitant]
  8. LANOXIN [Concomitant]
  9. GLIPIZIDE [Concomitant]
  10. GLUCOTROL [Concomitant]

REACTIONS (1)
  - DEATH [None]
